FAERS Safety Report 16439799 (Version 1)
Quarter: 2019Q3

REPORT INFORMATION
  Report Type: Spontaneous
  Country: US (occurrence: US)
  Receive Date: 20190615
  Receipt Date: 20190615
  Transmission Date: 20191004
  Serious: Yes (Life-Threatening, Other)
  Sender: FDA-Public Use
  Company Number: None

PATIENT
  Age: 38 Year
  Sex: Female
  Weight: 76.05 kg

DRUGS (1)
  1. ALPRAZOLAM. [Suspect]
     Active Substance: ALPRAZOLAM
     Indication: ANXIETY
     Route: 048
     Dates: start: 20121230, end: 20170704

REACTIONS (13)
  - Bradycardia [None]
  - Blood glucose abnormal [None]
  - Arthralgia [None]
  - Hypertension [None]
  - Withdrawal syndrome [None]
  - Autonomic nervous system imbalance [None]
  - Anxiety [None]
  - Orthostatic hypotension [None]
  - Dumping syndrome [None]
  - Pain [None]
  - Temperature regulation disorder [None]
  - Sinus tachycardia [None]
  - Chest pain [None]

NARRATIVE: CASE EVENT DATE: 20161127
